FAERS Safety Report 8143306-5 (Version None)
Quarter: 2012Q1

REPORT INFORMATION
  Report Type: 
  Country: None (occurrence: None)
  Receive Date: 20120217
  Receipt Date: 20120213
  Transmission Date: 20120608
  Serious: Yes (Hospitalization, Other)
  Sender: FDA-Public Use
  Company Number: BR-PFIZER INC-2012034059

PATIENT
  Age: 74 Year
  Sex: Male
  Weight: 59.5 kg

DRUGS (1)
  1. SUTENT [Suspect]
     Indication: METASTATIC RENAL CELL CARCINOMA
     Dosage: 50 MG, 1X/DAY
     Route: 048
     Dates: start: 20111130

REACTIONS (5)
  - DECREASED APPETITE [None]
  - EPISTAXIS [None]
  - DRY MOUTH [None]
  - PLATELET COUNT DECREASED [None]
  - RENAL DISORDER [None]
